FAERS Safety Report 8475173-4 (Version None)
Quarter: 2012Q2

REPORT INFORMATION
  Report Type: 
  Country: None (occurrence: None)
  Receive Date: 20120628
  Receipt Date: 20120619
  Transmission Date: 20120825
  Serious: Yes (Other)
  Sender: FDA-Public Use
  Company Number: JP-ASTRAZENECA-2012SE43222

PATIENT
  Age: 61 Year
  Sex: Female

DRUGS (3)
  1. KAMISHOYOSAN [Concomitant]
     Route: 048
  2. MUCOSOLVAN [Concomitant]
     Route: 048
  3. OMEPRAZOLE [Suspect]
     Indication: GASTROOESOPHAGEAL REFLUX DISEASE
     Route: 048
     Dates: start: 20120525

REACTIONS (3)
  - OROPHARYNGEAL PAIN [None]
  - CHEILITIS [None]
  - GINGIVAL SWELLING [None]
